FAERS Safety Report 5045850-6 (Version None)
Quarter: 2006Q2

REPORT INFORMATION
  Report Type: 
  Country: None (occurrence: None)
  Receive Date: 20060629
  Receipt Date: 20060616
  Transmission Date: 20061013
  Serious: Yes (Life-Threatening)
  Sender: FDA-Public Use
  Company Number: 2006065169

PATIENT
  Age: 76 Year
  Sex: Male
  Weight: 54 kg

DRUGS (7)
  1. IRINOTECAN HCL [Suspect]
     Indication: RECTAL CANCER
     Dosage: 220 MG (150 MG/M*2, IN 2 WEEKS), INTRAVENOUS
     Route: 042
     Dates: start: 20060331, end: 20060414
  2. FLUOROURACIL [Concomitant]
  3. CALCIUM LEVOFOLINATE [Concomitant]
  4. GLYCYRRHIZA EXTRACT [Concomitant]
  5. MAGNESIUM OXIDE [Concomitant]
  6. BLOPRESS (CANDESARTAN CILEXETIL) [Concomitant]
  7. AMLODIPINE [Concomitant]

REACTIONS (4)
  - CONTUSION [None]
  - DEPRESSED LEVEL OF CONSCIOUSNESS [None]
  - INTERSTITIAL LUNG DISEASE [None]
  - ROAD TRAFFIC ACCIDENT [None]
